APPROVED DRUG PRODUCT: EURAX
Active Ingredient: CROTAMITON
Strength: 10%
Dosage Form/Route: CREAM;TOPICAL
Application: N006927 | Product #001
Applicant: JOURNEY MEDICAL CORP
Approved: Approved Prior to Jan 1, 1982 | RLD: Yes | RS: No | Type: DISCN